FAERS Safety Report 6482737-6 (Version None)
Quarter: 2009Q4

REPORT INFORMATION
  Report Type: 
  Country: None (occurrence: None)
  Receive Date: 20091209
  Receipt Date: 20091022
  Transmission Date: 20100525
  Serious: No
  Sender: FDA-Public Use
  Company Number: US-AMGEN-KDL370614

PATIENT
  Sex: Female

DRUGS (5)
  1. ENBREL [Suspect]
     Indication: RHEUMATOID ARTHRITIS
  2. NABUMETONE [Concomitant]
  3. NADOLOL [Concomitant]
  4. ZOMIG [Concomitant]
  5. BENADRYL [Concomitant]

REACTIONS (1)
  - INJECTION SITE PAIN [None]
